FAERS Safety Report 15819903 (Version 13)
Quarter: 2023Q1

REPORT INFORMATION
  Report Type: Spontaneous
  Country: JP (occurrence: JP)
  Receive Date: 20190114
  Receipt Date: 20230306
  Transmission Date: 20230418
  Serious: Yes (Hospitalization, Other)
  Sender: FDA-Public Use
  Company Number: JP-BRISTOL-MYERS SQUIBB COMPANY-BMS-2018-062501

PATIENT
  Age: 71 Year
  Sex: Male
  Weight: 74.3 kg

DRUGS (8)
  1. YERVOY [Suspect]
     Active Substance: IPILIMUMAB
     Indication: Malignant melanoma
     Dosage: 216 MG, Q3W
     Route: 041
     Dates: start: 20180629, end: 20180810
  2. YERVOY [Suspect]
     Active Substance: IPILIMUMAB
     Dosage: 3 MG/KG
     Route: 041
     Dates: start: 20181116, end: 20181116
  3. YERVOY [Suspect]
     Active Substance: IPILIMUMAB
     Dosage: 3 MILLIGRAM/KILOGRAM
     Route: 041
     Dates: start: 20180810, end: 20180810
  4. OPDIVO [Suspect]
     Active Substance: NIVOLUMAB
     Indication: Malignant melanoma
     Dosage: 72 MG, Q3W
     Route: 041
     Dates: start: 20180629, end: 20180810
  5. OPDIVO [Suspect]
     Active Substance: NIVOLUMAB
     Dosage: 80 MG
     Route: 041
     Dates: start: 20181116, end: 20181116
  6. OPDIVO [Suspect]
     Active Substance: NIVOLUMAB
     Dosage: 240 MG, Q2W
     Route: 041
     Dates: start: 20181207, end: 20181221
  7. OPDIVO [Suspect]
     Active Substance: NIVOLUMAB
     Dosage: 1 MILLIGRAM/KILOGRAM
     Route: 041
     Dates: start: 20180810, end: 20180810
  8. OPDIVO [Suspect]
     Active Substance: NIVOLUMAB
     Dosage: 240 MG
     Route: 041
     Dates: start: 20190315, end: 20190315

REACTIONS (10)
  - Hypothyroidism [Recovered/Resolved]
  - Adrenal insufficiency [Recovering/Resolving]
  - Hepatic function abnormal [Recovered/Resolved]
  - Intestinal obstruction [Recovered/Resolved]
  - Injection site reaction [Recovered/Resolved]
  - Dermatitis acneiform [Recovering/Resolving]
  - Pruritus [Recovered/Resolved]
  - Pyrexia [Recovered/Resolved]
  - Thyroid function test abnormal [Unknown]
  - Hyponatraemia [Unknown]

NARRATIVE: CASE EVENT DATE: 20180629
